FAERS Safety Report 8817144 (Version 1)
Quarter: 2012Q4

REPORT INFORMATION
  Report Type: Spontaneous
  Country: US (occurrence: None)
  Receive Date: 20121003
  Receipt Date: 20121003
  Transmission Date: 20130627
  Serious: Yes (Other)
  Sender: FDA-Public Use
  Company Number: None

PATIENT
  Sex: Female
  Weight: 92.53 kg

DRUGS (1)
  1. TOPIRAMATE, 25MG, TEVA [Suspect]
     Indication: SEIZURES
     Dosage: exp. date 9-12-13
     Dates: start: 2011, end: 2012

REACTIONS (2)
  - Alopecia [None]
  - Paraesthesia [None]
